FAERS Safety Report 16940025 (Version 12)
Quarter: 2020Q1

REPORT INFORMATION
  Report Type: Report from Study
  Country: CN (occurrence: CN)
  Receive Date: 20191021
  Receipt Date: 20200106
  Transmission Date: 20200409
  Serious: Yes (Life-Threatening, Hospitalization)
  Sender: FDA-Public Use
  Company Number: CN-ROCHE-2444246

PATIENT
  Age: 54 Year
  Sex: Female
  Weight: 46.5 kg

DRUGS (51)
  1. DIPHENHYDRAMINE. [Concomitant]
     Active Substance: DIPHENHYDRAMINE
     Route: 065
     Dates: start: 20190830, end: 20190830
  2. RANITIDINE. [Concomitant]
     Active Substance: RANITIDINE
     Route: 065
     Dates: start: 20190807, end: 20190807
  3. DEXAMETHASONE. [Concomitant]
     Active Substance: DEXAMETHASONE
     Route: 065
     Dates: start: 20190920, end: 20190920
  4. POTASSIUM CHLORIDE. [Concomitant]
     Active Substance: POTASSIUM CHLORIDE
     Route: 065
     Dates: start: 20190807, end: 20190807
  5. POTASSIUM CHLORIDE. [Concomitant]
     Active Substance: POTASSIUM CHLORIDE
     Route: 065
     Dates: start: 20190830, end: 20190830
  6. TROPISETRON [Concomitant]
     Active Substance: TROPISETRON
     Route: 065
     Dates: start: 20190830, end: 20190830
  7. POTASSIUM CHLORIDE. [Concomitant]
     Active Substance: POTASSIUM CHLORIDE
     Route: 065
     Dates: start: 20190920, end: 20190920
  8. POTASSIUM CHLORIDE. [Concomitant]
     Active Substance: POTASSIUM CHLORIDE
     Route: 065
     Dates: start: 20191013, end: 20191013
  9. METOCLOPRAMIDE. [Concomitant]
     Active Substance: METOCLOPRAMIDE
     Route: 065
     Dates: start: 20190830, end: 20190830
  10. DIAZEPAM. [Concomitant]
     Active Substance: DIAZEPAM
     Route: 042
     Dates: start: 20191101, end: 20191101
  11. RANITIDINE. [Concomitant]
     Active Substance: RANITIDINE
     Route: 065
     Dates: start: 20190830, end: 20190830
  12. DEXAMETHASONE. [Concomitant]
     Active Substance: DEXAMETHASONE
     Route: 065
     Dates: start: 20191012, end: 20191012
  13. DIAZEPAM. [Concomitant]
     Active Substance: DIAZEPAM
     Route: 042
     Dates: start: 20190920, end: 20190920
  14. RANITIDINE. [Concomitant]
     Active Substance: RANITIDINE
     Route: 065
     Dates: start: 20190920, end: 20190920
  15. VITAMIN C [Concomitant]
     Active Substance: ASCORBIC ACID
     Route: 065
     Dates: start: 20191101, end: 20191101
  16. VITAMIN B6 [Concomitant]
     Active Substance: PYRIDOXINE HYDROCHLORIDE
     Route: 065
     Dates: start: 20190717
  17. POTASSIUM CHLORIDE. [Concomitant]
     Active Substance: POTASSIUM CHLORIDE
     Route: 065
     Dates: start: 20191011, end: 20191017
  18. METOCLOPRAMIDE. [Concomitant]
     Active Substance: METOCLOPRAMIDE
     Route: 065
     Dates: start: 20191101, end: 20191101
  19. AESCIN [AESCULUS HIPPOCASTANUM EXTRACT] [Concomitant]
     Route: 065
     Dates: start: 20190807
  20. BEVACIZUMAB. [Suspect]
     Active Substance: BEVACIZUMAB
     Indication: MALIGNANT PERITONEAL NEOPLASM
     Dosage: DATE OF MOST RECENT DOSE OF BEVACIZUMAB (705 MG) PRIOR TO SAE ONSET: 20/SEP/2019.
     Route: 042
     Dates: start: 20190625
  21. PACLITAXEL. [Suspect]
     Active Substance: PACLITAXEL
     Indication: FALLOPIAN TUBE CANCER
  22. DIPHENHYDRAMINE. [Concomitant]
     Active Substance: DIPHENHYDRAMINE
     Route: 065
     Dates: start: 20190807, end: 20190807
  23. DIPHENHYDRAMINE. [Concomitant]
     Active Substance: DIPHENHYDRAMINE
     Route: 065
     Dates: start: 20190920, end: 20190920
  24. TROPISETRON [Concomitant]
     Active Substance: TROPISETRON
     Route: 065
     Dates: start: 20190807, end: 20190807
  25. VITAMIN C [Concomitant]
     Active Substance: ASCORBIC ACID
     Route: 065
     Dates: start: 20191013, end: 20191013
  26. VITAMIN B6 [Concomitant]
     Active Substance: PYRIDOXINE HYDROCHLORIDE
     Route: 065
     Dates: start: 20190807, end: 20190807
  27. DIAZEPAM. [Concomitant]
     Active Substance: DIAZEPAM
     Route: 042
     Dates: start: 20190807, end: 20190807
  28. PACLITAXEL. [Suspect]
     Active Substance: PACLITAXEL
     Indication: MALIGNANT PERITONEAL NEOPLASM
     Dosage: DATE OF MOST RECENT DOSE OF PACLITAXEL PRIOR TO SAE ONSET: 20/SEP/2019 (240 MG)?DATE OF MOST RECENT
     Route: 042
     Dates: start: 20190604
  29. DEXAMETHASONE. [Concomitant]
     Active Substance: DEXAMETHASONE
     Route: 065
     Dates: start: 20190807, end: 20190807
  30. VITAMIN B6 [Concomitant]
     Active Substance: PYRIDOXINE HYDROCHLORIDE
     Route: 065
     Dates: start: 20190920, end: 20190920
  31. VITAMIN B6 [Concomitant]
     Active Substance: PYRIDOXINE HYDROCHLORIDE
     Route: 065
     Dates: start: 20191101, end: 20191101
  32. METOCLOPRAMIDE. [Concomitant]
     Active Substance: METOCLOPRAMIDE
     Indication: PROPHYLAXIS
     Route: 065
     Dates: start: 20190920, end: 20190920
  33. METOPROLOL. [Concomitant]
     Active Substance: METOPROLOL
     Indication: ARRHYTHMIA
     Route: 065
     Dates: start: 20191015, end: 20191017
  34. METOPROLOL. [Concomitant]
     Active Substance: METOPROLOL
     Route: 065
     Dates: start: 20191012, end: 20191012
  35. PACLITAXEL. [Suspect]
     Active Substance: PACLITAXEL
     Indication: OVARIAN CANCER
  36. TROPISETRON [Concomitant]
     Active Substance: TROPISETRON
     Indication: PROPHYLAXIS OF NAUSEA AND VOMITING
     Route: 065
     Dates: start: 20190920, end: 20190920
  37. DEXAMETHASONE. [Concomitant]
     Active Substance: DEXAMETHASONE
     Route: 065
     Dates: start: 20190830, end: 20190830
  38. VITAMIN B6 [Concomitant]
     Active Substance: PYRIDOXINE HYDROCHLORIDE
     Route: 065
     Dates: start: 20191013, end: 20191013
  39. METOCLOPRAMIDE. [Concomitant]
     Active Substance: METOCLOPRAMIDE
     Route: 065
     Dates: start: 20190807, end: 20190807
  40. RIVAROXABAN [Concomitant]
     Active Substance: RIVAROXABAN
     Route: 065
     Dates: start: 20190602, end: 201906
  41. CARBOPLATIN. [Suspect]
     Active Substance: CARBOPLATIN
     Indication: MALIGNANT PERITONEAL NEOPLASM
     Dosage: AREA UNDER THE CURVE (AUC) OF 6 MG/ML/MIN ON DAY 1 OF EACH 21-DAY CYCLE.?DATE OF MOST RECENT DOSE OF
     Route: 042
     Dates: start: 20190604
  42. CARBOPLATIN. [Suspect]
     Active Substance: CARBOPLATIN
     Indication: FALLOPIAN TUBE CANCER
  43. CARBOPLATIN. [Suspect]
     Active Substance: CARBOPLATIN
     Indication: OVARIAN CANCER
  44. TROPISETRON [Concomitant]
     Active Substance: TROPISETRON
     Route: 065
     Dates: start: 20191101, end: 20191101
  45. VITAMIN C [Concomitant]
     Active Substance: ASCORBIC ACID
     Route: 065
     Dates: start: 20190920, end: 20190920
  46. VITAMIN C [Concomitant]
     Active Substance: ASCORBIC ACID
     Route: 065
     Dates: start: 20190807, end: 20190807
  47. VITAMIN C [Concomitant]
     Active Substance: ASCORBIC ACID
     Route: 065
     Dates: start: 20190830, end: 20190830
  48. VITAMIN B6 [Concomitant]
     Active Substance: PYRIDOXINE HYDROCHLORIDE
     Route: 065
     Dates: start: 20190830, end: 20190830
  49. POTASSIUM CHLORIDE. [Concomitant]
     Active Substance: POTASSIUM CHLORIDE
     Route: 065
     Dates: start: 20191101, end: 20191101
  50. POTASSIUM CHLORIDE. [Concomitant]
     Active Substance: POTASSIUM CHLORIDE
     Route: 065
     Dates: start: 20191012
  51. DIAZEPAM. [Concomitant]
     Active Substance: DIAZEPAM
     Route: 042
     Dates: start: 20190830, end: 20190830

REACTIONS (1)
  - Bone marrow failure [Recovered/Resolved]

NARRATIVE: CASE EVENT DATE: 20190818
